FAERS Safety Report 24937438 (Version 1)
Quarter: 2025Q1

REPORT INFORMATION
  Report Type: Spontaneous
  Country: US (occurrence: US)
  Receive Date: 20250206
  Receipt Date: 20250206
  Transmission Date: 20250409
  Serious: Yes (Hospitalization)
  Sender: ALTATHERA PHARMACEUTICALS LLC
  Company Number: US-ALTATHERA-2025ALTLIT00003

PATIENT
  Sex: Female

DRUGS (4)
  1. SOTALOL HYDROCHLORIDE [Suspect]
     Active Substance: SOTALOL HYDROCHLORIDE
     Indication: Hypertension
  2. SOTALOL HYDROCHLORIDE [Suspect]
     Active Substance: SOTALOL HYDROCHLORIDE
     Indication: Atrial fibrillation
  3. WARFARIN [Concomitant]
     Active Substance: WARFARIN
     Indication: Hypertension
  4. WARFARIN [Concomitant]
     Active Substance: WARFARIN
     Indication: Atrial fibrillation

REACTIONS (2)
  - Toxicity to various agents [Recovered/Resolved]
  - Accidental exposure to product [Unknown]
